FAERS Safety Report 20611307 (Version 1)
Quarter: 2022Q1

REPORT INFORMATION
  Report Type: Spontaneous
  Country: US (occurrence: None)
  Receive Date: 20220318
  Receipt Date: 20220318
  Transmission Date: 20220423
  Serious: Yes (Hospitalization)
  Sender: FDA-Public Use
  Company Number: None

PATIENT
  Age: 10 Year
  Sex: Male
  Weight: 77.1 kg

DRUGS (6)
  1. ONCASPAR [Suspect]
     Active Substance: PEGASPARGASE
     Dates: end: 20220221
  2. CYTARABINE [Suspect]
     Active Substance: CYTARABINE
     Dates: end: 20220304
  3. DAUNORUBICIN [Suspect]
     Active Substance: DAUNORUBICIN
     Dates: end: 20220304
  4. METHOTREXATE [Suspect]
     Active Substance: METHOTREXATE
     Dates: end: 20220301
  5. PREDNISOLONE [Suspect]
     Active Substance: PREDNISOLONE
     Dates: end: 20220311
  6. VINCRISTINE SULFATE [Suspect]
     Active Substance: VINCRISTINE SULFATE
     Dates: end: 20220304

REACTIONS (12)
  - Cellulitis [None]
  - Staphylococcus test positive [None]
  - Diarrhoea [None]
  - Muscular weakness [None]
  - Staphylococcal infection [None]
  - Cerebral thrombosis [None]
  - Haemorrhagic infarction [None]
  - Mental status changes [None]
  - Respiratory failure [None]
  - Pulmonary embolism [None]
  - Cerebrovascular accident [None]
  - Peripheral swelling [None]

NARRATIVE: CASE EVENT DATE: 20220310
